FAERS Safety Report 8475657-9 (Version None)
Quarter: 2012Q2

REPORT INFORMATION
  Report Type: 
  Country: None (occurrence: None)
  Receive Date: 20120628
  Receipt Date: 20120619
  Transmission Date: 20120825
  Serious: Yes (Hospitalization)
  Sender: FDA-Public Use
  Company Number: US-ASTRAZENECA-2012SE42313

PATIENT
  Age: 29555 Day
  Sex: Male

DRUGS (9)
  1. ASPIRIN [Concomitant]
     Route: 048
     Dates: end: 20120509
  2. AZD6140 [Suspect]
     Indication: CORONARY ARTERY DISEASE
     Route: 048
     Dates: start: 20120510, end: 20120618
  3. ATENOLOL [Concomitant]
     Indication: HYPERTENSION
     Route: 048
  4. ASPIRIN [Concomitant]
     Route: 048
     Dates: start: 20120510
  5. GABAPENTIN [Concomitant]
     Indication: RESTLESS LEGS SYNDROME
     Route: 048
  6. SUBLINGUAL NTG [Concomitant]
     Indication: ANGINA PECTORIS
     Route: 060
  7. EVEROLIMUS [Concomitant]
  8. QUINAPRIL [Concomitant]
     Indication: HYPERTENSION
     Route: 048
  9. PRAVASTATIN [Concomitant]
     Indication: DYSLIPIDAEMIA
     Route: 048

REACTIONS (1)
  - PULMONARY HYPERTENSION [None]
